FAERS Safety Report 6088256-3 (Version None)
Quarter: 2009Q1

REPORT INFORMATION
  Report Type: 
  Country: None (occurrence: None)
  Receive Date: 20090224
  Receipt Date: 20090213
  Transmission Date: 20090719
  Serious: Yes (Death, Life-Threatening)
  Sender: FDA-Public Use
  Company Number: JP-BAYER-200811816BYL

PATIENT
  Age: 59 Year
  Sex: Male

DRUGS (6)
  1. NEXAVAR [Suspect]
     Indication: RENAL CELL CARCINOMA STAGE IV
     Dosage: UNIT DOSE: 200 MG
     Route: 048
     Dates: start: 20080620, end: 20080708
  2. OXYCONTIN [Suspect]
     Indication: DRUG USE FOR UNKNOWN INDICATION
     Route: 048
     Dates: start: 20080620, end: 20080708
  3. VOLTAREN [Concomitant]
     Route: 048
     Dates: start: 20080620, end: 20080708
  4. MUCOSTA [Concomitant]
     Route: 048
     Dates: start: 20080620, end: 20080708
  5. MAGMITT [Concomitant]
     Route: 048
     Dates: start: 20080620, end: 20080708
  6. DEPAS [Concomitant]
     Route: 048
     Dates: start: 20080620, end: 20080708

REACTIONS (4)
  - HYPONATRAEMIA [None]
  - INAPPROPRIATE ANTIDIURETIC HORMONE SECRETION [None]
  - PALMAR-PLANTAR ERYTHRODYSAESTHESIA SYNDROME [None]
  - RENAL CELL CARCINOMA STAGE IV [None]
